FAERS Safety Report 22078654 (Version 1)
Quarter: 2023Q1

REPORT INFORMATION
  Report Type: Spontaneous
  Country: NL (occurrence: NL)
  Receive Date: 20230309
  Receipt Date: 20230309
  Transmission Date: 20230418
  Serious: Yes (Hospitalization)
  Sender: FDA-Public Use
  Company Number: None

PATIENT
  Sex: Male
  Weight: 85 kg

DRUGS (6)
  1. SUNITINIB MALATE [Suspect]
     Active Substance: SUNITINIB MALATE
     Indication: Metastatic renal cell carcinoma
     Dosage: 1X PER DAY 2 PIECES
     Dates: start: 20230202, end: 20230219
  2. LEVOTHYROXINE SODIUM [Concomitant]
     Active Substance: LEVOTHYROXINE SODIUM
     Dosage: TABLET, 125 ?G (MICROGRAM)
  3. SOTALOL [Concomitant]
     Active Substance: SOTALOL
     Dosage: TABLET, 80 MG (MILLIGRAM)
  4. AMLODIPINE [Concomitant]
     Active Substance: AMLODIPINE BESYLATE
     Dosage: TABLET, 5 MG (MILLIGRAM)
  5. ACETAMINOPHEN [Concomitant]
     Active Substance: ACETAMINOPHEN
     Dosage: CAPSULE, 500 MG (MILLIGRAM)
  6. LEVOTHYROXINE [Concomitant]
     Active Substance: LEVOTHYROXINE
     Dosage: TABLET, 100 ?G (MICROGRAM)

REACTIONS (3)
  - Neutropenia [Recovered/Resolved]
  - Hepatic enzyme increased [Recovering/Resolving]
  - Renal impairment [Recovering/Resolving]
